FAERS Safety Report 5825878-6 (Version None)
Quarter: 2008Q3

REPORT INFORMATION
  Report Type: 
  Country: None (occurrence: None)
  Receive Date: 20080729
  Receipt Date: 20080725
  Transmission Date: 20090109
  Serious: Yes (Hospitalization)
  Sender: FDA-Public Use
  Company Number: US-AVENTIS-200814642US

PATIENT
  Sex: Female

DRUGS (1)
  1. KETEK [Suspect]
     Indication: SINUSITIS
     Dosage: DOSE: UNK
     Dates: start: 20070118

REACTIONS (5)
  - GAIT DISTURBANCE [None]
  - HEPATITIS ACUTE [None]
  - LETHARGY [None]
  - PYREXIA [None]
  - SWELLING [None]
